FAERS Safety Report 6455053-6 (Version None)
Quarter: 2009Q4

REPORT INFORMATION
  Report Type: 
  Country: None (occurrence: None)
  Receive Date: 20091118
  Receipt Date: 20091110
  Transmission Date: 20100525
  Serious: Yes (Other)
  Sender: FDA-Public Use
  Company Number: 09GB004953

PATIENT
  Age: 67 Year
  Sex: Male
  Weight: 92 kg

DRUGS (10)
  1. CETIRIZINE HCL [Suspect]
     Indication: PRURITUS
     Dosage: 10 MG, QD, ORAL
     Route: 048
     Dates: start: 20090925, end: 20090929
  2. CODEINE SUL TAB [Concomitant]
  3. DOCUSATE SODIUM (DOCUSATE SODIUM) [Concomitant]
  4. FYBOGEL (PLANTAGO OVATA) [Concomitant]
  5. LANSOPRAZOLE [Concomitant]
  6. MORPHINE [Concomitant]
  7. OLMESARTAN MEDOXOMIL [Concomitant]
  8. SIMVASTATIN [Concomitant]
  9. TRAMADOL HCL [Concomitant]
  10. TRIMETHOPRIM [Concomitant]

REACTIONS (5)
  - ANGER [None]
  - DIARRHOEA [None]
  - MOOD ALTERED [None]
  - PERSONALITY CHANGE [None]
  - THINKING ABNORMAL [None]
